FAERS Safety Report 7735164-5 (Version None)
Quarter: 2011Q3

REPORT INFORMATION
  Report Type: 
  Country: None (occurrence: None)
  Receive Date: 20110907
  Receipt Date: 20110830
  Transmission Date: 20111222
  Serious: Yes (Other)
  Sender: FDA-Public Use
  Company Number: CA-JNJFOC-20110901574

PATIENT
  Sex: Female
  Weight: 73.4 kg

DRUGS (17)
  1. QUESTRAN [Concomitant]
  2. CALCIUM CARBONATE [Concomitant]
  3. REMICADE [Suspect]
     Route: 042
     Dates: start: 20110405
  4. SYNTHROID [Concomitant]
  5. VITAMIN B-12 [Concomitant]
  6. DEMEROL [Concomitant]
  7. MAGNESIUM [Concomitant]
  8. ASPIRIN [Concomitant]
  9. MAXERAN [Concomitant]
  10. IMURAN [Concomitant]
     Route: 048
  11. REMICADE [Suspect]
     Indication: CROHN'S DISEASE
     Route: 042
     Dates: start: 20101116
  12. IMODIUM [Concomitant]
  13. REMICADE [Suspect]
     Dosage: 7TH INFLIXIMAB INFUSION
     Route: 042
     Dates: start: 20110726
  14. MEDROXYPROGESTERONE [Concomitant]
  15. GRAVOL TAB [Concomitant]
  16. VITAMIN D [Concomitant]
  17. ESTRACE [Concomitant]

REACTIONS (2)
  - PRECANCEROUS SKIN LESION [None]
  - BREAST CALCIFICATIONS [None]
